FAERS Safety Report 5525018-7 (Version None)
Quarter: 2007Q4

REPORT INFORMATION
  Report Type: 
  Country: None (occurrence: None)
  Receive Date: 20071119
  Receipt Date: 20071017
  Transmission Date: 20080405
  Serious: Yes (Hospitalization, Other)
  Sender: FDA-Public Use
  Company Number: 2007US002596

PATIENT
  Sex: Male

DRUGS (4)
  1. AMEVIVE(ALAFECEPT) INJECTION [Suspect]
     Indication: PSORIASIS
     Dosage: 15 MG, WEEKLY, INTRAMUSCULAR
     Route: 030
     Dates: start: 20070914
  2. ALTACE [Concomitant]
  3. CELEBREX [Concomitant]
  4. METFORMIN HCL [Concomitant]

REACTIONS (2)
  - CHOLELITHIASIS [None]
  - DYSPEPSIA [None]
